FAERS Safety Report 11709161 (Version 1)
Quarter: 2015Q4

REPORT INFORMATION
  Report Type: Spontaneous
  Country: US (occurrence: US)
  Receive Date: 20151104
  Receipt Date: 20151104
  Transmission Date: 20160304
  Serious: No
  Sender: FDA-Public Use
  Company Number: US-ELI_LILLY_AND_COMPANY-US201103002787

PATIENT
  Age: 70 Year
  Sex: Female

DRUGS (5)
  1. VITAMIN D [Concomitant]
     Active Substance: CHOLECALCIFEROL
  2. FORTEO [Suspect]
     Active Substance: TERIPARATIDE
     Indication: OSTEOPOROSIS
     Dosage: 20 UG, DAILY (1/D)
     Dates: start: 201009, end: 20110228
  3. CALCIUM [Concomitant]
     Active Substance: CALCIUM
     Dosage: 2 D/F, DAILY (1/D)
  4. FORTEO [Suspect]
     Active Substance: TERIPARATIDE
     Dosage: 20 UG, DAILY (1/D)
  5. FORTEO [Suspect]
     Active Substance: TERIPARATIDE
     Dosage: 20 UG, DAILY (1/D)
     Dates: end: 20110303

REACTIONS (27)
  - Adverse reaction [Unknown]
  - Somnolence [Unknown]
  - Anger [Unknown]
  - Asthenia [Unknown]
  - Malaise [Unknown]
  - Crying [Unknown]
  - Gait disturbance [Unknown]
  - Pharyngeal oedema [Unknown]
  - Hypoacusis [Recovering/Resolving]
  - Blood iron increased [Unknown]
  - Drug tolerance decreased [Unknown]
  - Dyspepsia [Unknown]
  - Middle insomnia [Unknown]
  - Dizziness [Unknown]
  - Intentional product misuse [Not Recovered/Not Resolved]
  - Abdominal pain upper [Unknown]
  - Bronchitis [Unknown]
  - Vomiting [Unknown]
  - Asthma [Unknown]
  - Feeling abnormal [Unknown]
  - Dry mouth [Unknown]
  - Language disorder [Unknown]
  - Non-cardiac chest pain [Unknown]
  - Decreased appetite [Unknown]
  - Inner ear disorder [Unknown]
  - Diarrhoea [Unknown]
  - Anxiety [Unknown]

NARRATIVE: CASE EVENT DATE: 20110226
